FAERS Safety Report 11313446 (Version 3)
Quarter: 2015Q3

REPORT INFORMATION
  Report Type: Spontaneous
  Country: US (occurrence: US)
  Receive Date: 20150727
  Receipt Date: 20150806
  Transmission Date: 20151125
  Serious: No
  Sender: FDA-Public Use
  Company Number: US-PFIZER INC-2015244210

PATIENT
  Age: 49 Year
  Sex: Female

DRUGS (2)
  1. IBRANCE [Suspect]
     Active Substance: PALBOCICLIB
     Indication: BREAST CANCER
     Dosage: 125 MG, UNK
     Route: 048
     Dates: start: 20150717, end: 20150727
  2. LETROZOLE. [Concomitant]
     Active Substance: LETROZOLE

REACTIONS (5)
  - Nausea [Unknown]
  - Fatigue [Unknown]
  - Back pain [Unknown]
  - Decreased appetite [Unknown]
  - Dysgeusia [Unknown]

NARRATIVE: CASE EVENT DATE: 2015
